FAERS Safety Report 6991657-X (Version None)
Quarter: 2010Q3

REPORT INFORMATION
  Report Type: 
  Country: None (occurrence: None)
  Receive Date: 20100915
  Receipt Date: 20100915
  Transmission Date: 20110219
  Serious: Yes (Other)
  Sender: FDA-Public Use
  Company Number: None

PATIENT
  Sex: Male
  Weight: 165 kg

DRUGS (1)
  1. GENERIC PROZAC 40MG - NORTHSTAR [Suspect]
     Indication: DEPRESSION
     Dosage: ONE CAPSULE 2X'S DAILY
     Dates: start: 20100716, end: 20100730

REACTIONS (6)
  - ABNORMAL BEHAVIOUR [None]
  - CRYING [None]
  - PRODUCT LABEL ISSUE [None]
  - PSYCHOTIC DISORDER [None]
  - SCREAMING [None]
  - SELF INJURIOUS BEHAVIOUR [None]
